FAERS Safety Report 8858439 (Version 4)
Quarter: 2013Q1

REPORT INFORMATION
  Report Type: Spontaneous
  Country: US (occurrence: US)
  Receive Date: 20121024
  Receipt Date: 20130307
  Transmission Date: 20140127
  Serious: Yes (Hospitalization, Disabling, Other)
  Sender: FDA-Public Use
  Company Number: US-009507513-1202USA01979

PATIENT
  Sex: Female

DRUGS (4)
  1. FOSAMAX [Suspect]
     Indication: OSTEOPENIA
     Dosage: 70 MG, QW
     Route: 048
     Dates: start: 1994, end: 201103
  2. FOSAMAX [Suspect]
     Indication: OSTEOPENIA
     Dosage: 10 MG, QD
     Route: 048
  3. FOSAMAX [Suspect]
     Dosage: 70 MG QW
     Route: 048
     Dates: start: 1994, end: 200712
  4. ALENDRONATE SODIUM [Suspect]
     Indication: OSTEOPENIA
     Dosage: 70 MG, QW
     Route: 048
     Dates: start: 200712, end: 201103

REACTIONS (8)
  - Hip fracture [Not Recovered/Not Resolved]
  - Open reduction of fracture [Unknown]
  - Femur fracture [Unknown]
  - Open reduction of fracture [Unknown]
  - Low turnover osteopathy [Not Recovered/Not Resolved]
  - Spinal compression fracture [Unknown]
  - Scoliosis [Unknown]
  - Spinal osteoarthritis [Unknown]
